FAERS Safety Report 9369124 (Version 2)
Quarter: 2013Q3

REPORT INFORMATION
  Report Type: Report from Study
  Country: MX (occurrence: MX)
  Receive Date: 20130626
  Receipt Date: 20130731
  Transmission Date: 20140515
  Serious: Yes (Other)
  Sender: FDA-Public Use
  Company Number: PHHY2013MX065150

PATIENT
  Sex: Female

DRUGS (7)
  1. DIOVAN [Suspect]
     Indication: HYPERTENSION
     Dosage: 1 DF (160 MG), DAILY
     Route: 048
     Dates: start: 201209, end: 201306
  2. DIOVAN [Suspect]
     Dosage: 2 DF (160 MG), DAILY
     Route: 048
     Dates: start: 201306
  3. KARET [Concomitant]
     Indication: THYROID DISORDER
     Dosage: 1 DF, QD IN THE MORNING
     Dates: start: 201302
  4. LASIX [Concomitant]
     Indication: DIURETIC THERAPY
     Dosage: 1 DF, DAILY
  5. GLUCOPHAGE [Concomitant]
     Indication: DIABETES MELLITUS
     Dosage: 3 DF, DAILY
     Dates: start: 2003
  6. ENALAPRIL [Concomitant]
     Indication: HYPERTENSION
     Dosage: 2 DF, DAILY
  7. NORFENON [Concomitant]
     Indication: ARRHYTHMIA
     Dosage: 2 DF, DAILY

REACTIONS (9)
  - Blood glucose increased [Recovered/Resolved]
  - Blood pressure increased [Recovered/Resolved]
  - Obesity [Not Recovered/Not Resolved]
  - Cardiovascular disorder [Not Recovered/Not Resolved]
  - Local swelling [Recovered/Resolved]
  - Glycosylated haemoglobin increased [Unknown]
  - Urinary tract infection [Recovered/Resolved]
  - Blood uric acid increased [Not Recovered/Not Resolved]
  - Hunger [Not Recovered/Not Resolved]
